FAERS Safety Report 5664160-7 (Version None)
Quarter: 2008Q1

REPORT INFORMATION
  Report Type: 
  Country: None (occurrence: None)
  Receive Date: 20080314
  Receipt Date: 20080314
  Transmission Date: 20080703
  Serious: No
  Sender: FDA-Public Use
  Company Number: None

PATIENT
  Age: 29 Year
  Sex: Female
  Weight: 55.3388 kg

DRUGS (2)
  1. HEPARIN [Suspect]
     Indication: BLADDER DISORDER
     Dosage: ONCE URETHRAL HELD IN BLADDER FOR 1 HR.
     Route: 066
     Dates: start: 20071226, end: 20071226
  2. HEPARIN [Suspect]
     Indication: BLADDER DISORDER
     Dosage: ONCE URETHRAL HELD IN BLADDER FOR 1 HR.
     Route: 066
     Dates: start: 20080312, end: 20080312

REACTIONS (9)
  - BLADDER SPASM [None]
  - DRUG EFFECT DECREASED [None]
  - DYSURIA [None]
  - FEELING ABNORMAL [None]
  - HEADACHE [None]
  - INSOMNIA [None]
  - NO THERAPEUTIC RESPONSE [None]
  - PAIN [None]
  - PHARMACEUTICAL PRODUCT COMPLAINT [None]
